FAERS Safety Report 10046140 (Version 1)
Quarter: 2014Q1

REPORT INFORMATION
  Report Type: Spontaneous
  Country: US (occurrence: US)
  Receive Date: 20140331
  Receipt Date: 20140331
  Transmission Date: 20141002
  Serious: No
  Sender: FDA-Public Use
  Company Number: US-BIOGENIDEC-2014BI027906

PATIENT
  Age: 54 Year
  Sex: Male

DRUGS (7)
  1. AVONEX [Suspect]
     Indication: MULTIPLE SCLEROSIS
     Route: 030
     Dates: start: 20120228
  2. CARBAMAZEPINE [Concomitant]
  3. CLONAZEPAM [Concomitant]
  4. LEVOTHYROXINE SODIUM [Concomitant]
  5. RISPERIDONE [Concomitant]
  6. VITAMIN B COMPLEX [Concomitant]
  7. VITAMIN D [Concomitant]

REACTIONS (1)
  - Influenza [Unknown]
